FAERS Safety Report 7415868-4 (Version None)
Quarter: 2011Q2

REPORT INFORMATION
  Report Type: 
  Country: None (occurrence: None)
  Receive Date: 20110414
  Receipt Date: 20110408
  Transmission Date: 20111010
  Serious: Yes (Other)
  Sender: FDA-Public Use
  Company Number: JP-B.I. PHARMACEUTICALS,INC./RIDGEFIELD-2011-BP-10389NB

PATIENT
  Age: 87 Year
  Sex: Female

DRUGS (12)
  1. FRANDOL S [Concomitant]
     Route: 065
  2. DEPAS [Concomitant]
     Route: 065
  3. PRAZAXA [Suspect]
     Dosage: 220 MG
     Route: 065
  4. THYRADIN [Concomitant]
     Route: 065
  5. ARTIST [Concomitant]
     Route: 065
  6. MUCOSTA [Concomitant]
     Route: 065
  7. NATRIX [Concomitant]
     Route: 065
  8. MAGMITT [Concomitant]
     Route: 065
  9. AMLODIN [Concomitant]
     Route: 065
  10. DISOPYRAMIDE PHOSPHATE [Concomitant]
     Route: 065
  11. DOXAZOSIN MESYLATE [Concomitant]
     Route: 065
  12. LANIRAPID [Concomitant]
     Route: 065

REACTIONS (1)
  - CEREBRAL INFARCTION [None]
